FAERS Safety Report 6733082-2 (Version None)
Quarter: 2010Q2

REPORT INFORMATION
  Report Type: 
  Country: None (occurrence: None)
  Receive Date: 20100518
  Receipt Date: 20100510
  Transmission Date: 20101027
  Serious: Yes (Hospitalization)
  Sender: FDA-Public Use
  Company Number: FR-1181887

PATIENT
  Age: 27 Year
  Sex: Male

DRUGS (4)
  1. MAXITROL [Suspect]
     Indication: HYPERSENSITIVITY
     Dosage: 1 GTT QID, OPHTHALMIC
     Route: 047
     Dates: start: 20090706, end: 20090713
  2. ALLOPURINOL [Suspect]
     Indication: GOUT
     Dosage: 200 MG QD, ORAL
     Route: 048
     Dates: start: 20090706, end: 20090730
  3. KETOPROFEN [Suspect]
     Indication: GOUT
     Dosage: 200 MG, ORAL
     Route: 048
     Dates: start: 20090706, end: 20090713
  4. OMEPRAZOLE [Suspect]
     Indication: GASTROOESOPHAGEAL REFLUX DISEASE
     Dosage: 20 MG QD, ORAL
     Route: 048
     Dates: start: 20090706, end: 20090713

REACTIONS (1)
  - DRUG RASH WITH EOSINOPHILIA AND SYSTEMIC SYMPTOMS [None]
